FAERS Safety Report 15460244 (Version 2)
Quarter: 2018Q4

REPORT INFORMATION
  Report Type: Report from Study
  Country: BR (occurrence: BR)
  Receive Date: 20181003
  Receipt Date: 20181214
  Transmission Date: 20190204
  Serious: Yes (Death, Hospitalization)
  Sender: FDA-Public Use
  Company Number: BR-JNJFOC-20180930528

PATIENT

DRUGS (1)
  1. REMICADE [Suspect]
     Active Substance: INFLIXIMAB
     Indication: COLITIS
     Dosage: PARENT DOSING
     Route: 042
     Dates: start: 2014, end: 20160520

REACTIONS (2)
  - Foetal exposure during pregnancy [Recovered/Resolved]
  - Bronchiolitis [Fatal]

NARRATIVE: CASE EVENT DATE: 2016
